FAERS Safety Report 20108346 (Version 1)
Quarter: 2021Q4

REPORT INFORMATION
  Report Type: Spontaneous
  Country: US (occurrence: None)
  Receive Date: 20211123
  Receipt Date: 20211123
  Transmission Date: 20220303
  Serious: No
  Sender: FDA-Public Use
  Company Number: None

PATIENT
  Age: 70 Year
  Sex: Male
  Weight: 72 kg

DRUGS (1)
  1. TRAZODONE [Suspect]
     Active Substance: TRAZODONE HYDROCHLORIDE
     Indication: Insomnia
     Dosage: OTHER QUANTITY : 2 TABLET(S);?FREQUENCY : AT BEDTIME;?
     Route: 048
     Dates: start: 20211122, end: 20211123

REACTIONS (9)
  - Drug ineffective [None]
  - Taste disorder [None]
  - Balance disorder [None]
  - Poor quality sleep [None]
  - Erection increased [None]
  - Gait disturbance [None]
  - Asthenia [None]
  - Hypersomnia [None]
  - Pollakiuria [None]

NARRATIVE: CASE EVENT DATE: 20211123
